FAERS Safety Report 17601534 (Version 1)
Quarter: 2020Q1

REPORT INFORMATION
  Report Type: Spontaneous
  Country: AT (occurrence: AT)
  Receive Date: 20200331
  Receipt Date: 20200331
  Transmission Date: 20200409
  Serious: Yes (Other)
  Sender: FDA-Public Use
  Company Number: AT-AMGEN-AUTSP2020048585

PATIENT
  Age: 46 Year
  Sex: Female

DRUGS (14)
  1. VITAMIN D3 [Concomitant]
     Active Substance: CHOLECALCIFEROL
     Indication: MULTIPLE SCLEROSIS
     Dosage: 150,000 IU, QD
  2. CHOLINE [Concomitant]
     Active Substance: CHOLINE
     Dosage: 500 MILLIGRAM, QD
  3. SELEN [SELENIUM] [Concomitant]
     Dosage: 200 PICOGRAM, QWK
  4. METHYL FOLATE [Concomitant]
     Active Substance: LEVOMEFOLATE CALCIUM
     Dosage: 100 MILLIGRAM, QD
  5. RIBOFLAVIN [Concomitant]
     Active Substance: RIBOFLAVIN
     Dosage: 200 MILLIGRAM, QD
  6. PROLIA [Suspect]
     Active Substance: DENOSUMAB
     Indication: HYPERCALCAEMIA
     Dosage: UNK
     Route: 065
  7. MAGNESIUM [Concomitant]
     Active Substance: MAGNESIUM
     Dosage: 600 MILLIGRAM, QD
  8. VITAMIN K2 [MENAQUINONE-7] [Concomitant]
     Dosage: 200 PICOGRAM, QD
  9. ZINC. [Concomitant]
     Active Substance: ZINC
     Dosage: 15 MILLIGRAM, QD
  10. LYSIN [LISINOPRIL DIHYDRATE] [Concomitant]
     Dosage: 3 GRAM, QD
  11. FAMCICLOVIR. [Concomitant]
     Active Substance: FAMCICLOVIR
     Dosage: 500 MILLIGRAM, QD
  12. FUROSEMIDE. [Concomitant]
     Active Substance: FUROSEMIDE
  13. PANTOTHENIC ACID CALCIUM [Concomitant]
     Indication: MULTIPLE SCLEROSIS
     Dosage: 1000 MILLIGRAM
  14. PYRIDOXAL 5 PHOSPHATE [Concomitant]
     Active Substance: PYRIDOXAL PHOSPHATE ANHYDROUS
     Dosage: 20 MILLIGRAM, QD

REACTIONS (3)
  - Drug ineffective for unapproved indication [Unknown]
  - Blood creatinine increased [Recovered/Resolved]
  - Haemodialysis [Unknown]
